FAERS Safety Report 24374435 (Version 1)
Quarter: 2024Q3

REPORT INFORMATION
  Report Type: Spontaneous
  Country: US (occurrence: US)
  Receive Date: 20240927
  Receipt Date: 20240927
  Transmission Date: 20241016
  Serious: Yes (Other)
  Sender: ORGANON
  Company Number: US-ORGANON-O2408USA001915

PATIENT
  Sex: Female
  Weight: 136.51 kg

DRUGS (11)
  1. NEXPLANON [Suspect]
     Active Substance: ETONOGESTREL
     Indication: Contraception
     Dosage: 1 IMPLANT (EVERY 3 YEARS) (LEFT UPPER ARM) (PATIENT^S NON DOMINANT ARM)
     Route: 059
     Dates: start: 20210925
  2. XANAX [Concomitant]
     Active Substance: ALPRAZOLAM
     Indication: Panic attack
     Dosage: 1 TABLET DAILY
     Route: 048
     Dates: start: 20231229
  3. BUSPAR [Concomitant]
     Active Substance: BUSPIRONE HYDROCHLORIDE
     Dosage: 1 TABLET BY MOUTH 2 TIMES A DAY
     Route: 048
     Dates: start: 20240705
  4. BUSPAR [Concomitant]
     Active Substance: BUSPIRONE HYDROCHLORIDE
     Dosage: 15 MG BY MOUTH 2 (TWO TIMES A DAY) (1.5 TAB IN MORNING AND AT NIGHT)
     Route: 048
     Dates: end: 20240710
  5. GLUCOPHAGE [Concomitant]
     Active Substance: METFORMIN HYDROCHLORIDE
     Dosage: 500 MG BY MOUTH, 2 TIMES A DAY WITH MEAL
     Route: 048
     Dates: start: 20231204, end: 20240709
  6. ZOLOFT [Concomitant]
     Active Substance: SERTRALINE HYDROCHLORIDE
     Dosage: 100 MG BY MOUTH
     Route: 048
  7. ADDERALL [Concomitant]
     Active Substance: AMPHETAMINE ASPARTATE\AMPHETAMINE SULFATE\DEXTROAMPHETAMINE SACCHARATE\DEXTROAMPHETAMINE SULFATE
     Dosage: (30 MG 24 HR) (30 MG BY MOUTH EVERY MORNING) (EXTENDED RELEASE CAPSULE)
     Route: 048
     Dates: start: 20240507
  8. CORTOMYCIN [HYDROCORTISONE;NEOMYCIN SULFATE;POLYMYXIN B SULFATE] [Concomitant]
     Dosage: (3 DROPS BY EACH EAR) OTIC SUSPENSION
     Route: 031
     Dates: start: 20240709, end: 20240906
  9. WEGOVY [Concomitant]
     Active Substance: SEMAGLUTIDE
     Dosage: INJECT 0.5 MI (TOTAL 0.25 MG) UNDER THE SKIN EVERY 7 DAYS
     Route: 058
     Dates: start: 20240710, end: 20240906
  10. VYVANSE [Concomitant]
     Active Substance: LISDEXAMFETAMINE DIMESYLATE
     Dosage: 60 MILLIGRAM, EVERY MORNING
     Route: 048
     Dates: start: 20160404, end: 20240709
  11. GEODON [Concomitant]
     Active Substance: ZIPRASIDONE HYDROCHLORIDE\ZIPRASIDONE MESYLATE
     Dosage: 20 MILLIGRAM, BID WITH MEALS 20 MG IN AM AND 40 MG IN PM
     Route: 048
     Dates: start: 20180729

REACTIONS (7)
  - Device dislocation [Not Recovered/Not Resolved]
  - Breast cyst [Unknown]
  - Complication associated with device [Recovered/Resolved]
  - Complication associated with device [Not Recovered/Not Resolved]
  - Complication of device removal [Not Recovered/Not Resolved]
  - Complication of device removal [Not Recovered/Not Resolved]
  - Incorrect product administration duration [Unknown]

NARRATIVE: CASE EVENT DATE: 20240101
